FAERS Safety Report 4330421-7 (Version None)
Quarter: 2004Q2

REPORT INFORMATION
  Report Type: 
  Country: None (occurrence: None)
  Receive Date: 20040402
  Receipt Date: 20030424
  Transmission Date: 20050107
  Serious: Yes (Hospitalization)
  Sender: FDA-Public Use
  Company Number: US-BRISTOL-MYERS SQUIBB COMPANY-12252573

PATIENT
  Sex: Male

DRUGS (2)
  1. HYDREA [Suspect]
     Indication: THALASSAEMIA BETA
     Route: 048
  2. FOLATE [Concomitant]

REACTIONS (2)
  - BLOOD ALKALINE PHOSPHATASE INCREASED [None]
  - SICKLE CELL ANAEMIA WITH CRISIS [None]
